FAERS Safety Report 4675371-1 (Version None)
Quarter: 2005Q2

REPORT INFORMATION
  Report Type: 
  Country: None (occurrence: None)
  Receive Date: 20050527
  Receipt Date: 20050210
  Transmission Date: 20051028
  Serious: No
  Sender: FDA-Public Use
  Company Number: US-BRISTOL-MYERS SQUIBB COMPANY-12857272

PATIENT
  Age: 56 Year
  Sex: Female
  Weight: 79 kg

DRUGS (4)
  1. ABILIFY [Suspect]
     Indication: PARANOIA
     Dates: end: 20050111
  2. WELLBUTRIN [Concomitant]
  3. CALCIUM GLUCONATE [Concomitant]
  4. MIRALAX [Concomitant]

REACTIONS (7)
  - DIZZINESS [None]
  - DRUG WITHDRAWAL SYNDROME [None]
  - PRURITUS [None]
  - RESTLESS LEGS SYNDROME [None]
  - TONGUE DISORDER [None]
  - TONGUE DRY [None]
  - TREMOR [None]
